FAERS Safety Report 18363754 (Version 1)
Quarter: 2020Q4

REPORT INFORMATION
  Report Type: Report from Study
  Country: CA (occurrence: CA)
  Receive Date: 20201009
  Receipt Date: 20201009
  Transmission Date: 20210114
  Serious: Yes (Other)
  Sender: FDA-Public Use
  Company Number: CA-JNJFOC-20200804103

PATIENT
  Age: 62 Year
  Sex: Female
  Weight: 75 kg

DRUGS (2)
  1. REMICADE [Suspect]
     Active Substance: INFLIXIMAB
     Indication: RHEUMATOID ARTHRITIS
     Route: 042
     Dates: start: 20120403
  2. REMICADE [Suspect]
     Active Substance: INFLIXIMAB
     Route: 042

REACTIONS (3)
  - Ear infection [Not Recovered/Not Resolved]
  - Salivary gland cancer [Unknown]
  - Lung disorder [Unknown]

NARRATIVE: CASE EVENT DATE: 20200630
